FAERS Safety Report 10535031 (Version 1)
Quarter: 2014Q4

REPORT INFORMATION
  Report Type: Spontaneous
  Country: US (occurrence: US)
  Receive Date: 20141022
  Receipt Date: 20141022
  Transmission Date: 20150529
  Serious: No
  Sender: FDA-Public Use
  Company Number: US-ASTRAZENECA-2014SE09661

PATIENT
  Age: 61 Year
  Sex: Female

DRUGS (14)
  1. PROBIOTICS [Concomitant]
     Active Substance: PROBIOTICS NOS
     Indication: SUPPLEMENTATION THERAPY
  2. HUMIRA [Suspect]
     Active Substance: ADALIMUMAB
     Dosage: 160 MG ONCE
     Route: 065
     Dates: start: 20131119, end: 20131119
  3. BIOTIN [Concomitant]
     Active Substance: BIOTIN
  4. PREDNISONE. [Concomitant]
     Active Substance: PREDNISONE
  5. CRESTOR [Suspect]
     Active Substance: ROSUVASTATIN CALCIUM
     Route: 048
  6. CRESTOR [Suspect]
     Active Substance: ROSUVASTATIN CALCIUM
     Route: 048
  7. HUMIRA [Suspect]
     Active Substance: ADALIMUMAB
     Dosage: 80 MG ONCE
     Route: 065
     Dates: start: 20131203, end: 20131203
  8. HCTZ [Concomitant]
     Active Substance: HYDROCHLOROTHIAZIDE
     Indication: HYPERTENSION
  9. PRAMIPEXOLE [Concomitant]
     Active Substance: PRAMIPEXOLE
     Indication: RESTLESS LEGS SYNDROME
  10. HUMIRA [Suspect]
     Active Substance: ADALIMUMAB
     Route: 065
  11. CALCIUM [Concomitant]
     Active Substance: CALCIUM
  12. BABY ASPIRIN [Concomitant]
     Active Substance: ASPIRIN
     Indication: PROPHYLAXIS
  13. MULTIVITAMIN [Concomitant]
     Active Substance: VITAMINS
  14. CLONAZAPAM [Concomitant]
     Indication: SLEEP DISORDER

REACTIONS (7)
  - Injection site swelling [Recovered/Resolved]
  - Blood cholesterol abnormal [Unknown]
  - Injection site bruising [Recovered/Resolved]
  - Alopecia [Unknown]
  - Injection site pruritus [Recovered/Resolved]
  - Drug ineffective [Unknown]
  - Injection site haemorrhage [Recovered/Resolved]

NARRATIVE: CASE EVENT DATE: 2013
